FAERS Safety Report 17211180 (Version 1)
Quarter: 2019Q4

REPORT INFORMATION
  Report Type: Spontaneous
  Country: PH (occurrence: PH)
  Receive Date: 20191228
  Receipt Date: 20191228
  Transmission Date: 20200122
  Serious: Yes (Hospitalization)
  Sender: FDA-Public Use
  Company Number: PH-SCIEGEN PHARMACEUTICALS INC-2019SCILIT00392

PATIENT
  Age: 67 Year
  Sex: Male

DRUGS (1)
  1. METFORMIN HYDROCHLORIDETABLETS [Suspect]
     Active Substance: METFORMIN HYDROCHLORIDE

REACTIONS (2)
  - Photosensitivity reaction [Recovered/Resolved]
  - Treatment noncompliance [Recovered/Resolved]
